FAERS Safety Report 9336879 (Version 1)
Quarter: 2013Q2

REPORT INFORMATION
  Report Type: Spontaneous
  Country: US (occurrence: US)
  Receive Date: 20130607
  Receipt Date: 20130607
  Transmission Date: 20140414
  Serious: Yes (Congenital Anomaly, Other)
  Sender: FDA-Public Use
  Company Number: US-PFIZER INC-2013169932

PATIENT
  Sex: Male

DRUGS (2)
  1. ZOLOFT [Suspect]
     Dosage: UNK
     Route: 064
  2. SERTRALINE HCL [Suspect]
     Dosage: UNK
     Route: 064

REACTIONS (12)
  - Maternal exposure during pregnancy [Unknown]
  - Gastroschisis [Unknown]
  - Intestinal malrotation [Unknown]
  - Congenital small intestinal atresia [Unknown]
  - Neonatal respiratory distress syndrome [Unknown]
  - Congenital anomaly [Unknown]
  - Apnoea neonatal [Unknown]
  - Anaemia neonatal [Unknown]
  - Staphylococcal sepsis [Unknown]
  - Cardiac disorder [Unknown]
  - Jaundice neonatal [Unknown]
  - Gastrooesophageal reflux disease [Unknown]
